FAERS Safety Report 7994738-7 (Version None)
Quarter: 2011Q4

REPORT INFORMATION
  Report Type: 
  Country: None (occurrence: None)
  Receive Date: 20111220
  Receipt Date: 20111214
  Transmission Date: 20120403
  Serious: Yes (Hospitalization, Other)
  Sender: FDA-Public Use
  Company Number: US-JNJFOC-20090506533

PATIENT
  Sex: Male

DRUGS (4)
  1. LEVAQUIN [Suspect]
     Indication: BRONCHITIS
     Route: 065
     Dates: start: 20071201
  2. LEVAQUIN [Suspect]
     Indication: PNEUMONIA
     Route: 065
     Dates: start: 20071201
  3. PREDNISONE [Suspect]
     Indication: RESPIRATORY DISORDER
     Route: 065
  4. LEVAQUIN [Suspect]
     Indication: UPPER RESPIRATORY TRACT INFECTION
     Route: 065
     Dates: start: 20071201

REACTIONS (3)
  - TENDON RUPTURE [None]
  - POST-TRAUMATIC STRESS DISORDER [None]
  - TENDONITIS [None]
